FAERS Safety Report 6983869-6 (Version None)
Quarter: 2010Q3

REPORT INFORMATION
  Report Type: 
  Country: None (occurrence: None)
  Receive Date: 20100914
  Receipt Date: 20090323
  Transmission Date: 20110219
  Serious: No
  Sender: FDA-Public Use
  Company Number: US-WYE-H08675709

PATIENT
  Age: 69 Year
  Sex: Female
  Weight: 49.03 kg

DRUGS (2)
  1. ADVIL PM [Suspect]
     Indication: INSOMNIA
     Dosage: 1 CAPLET X 1
     Route: 048
     Dates: start: 20090320, end: 20090320
  2. ADVIL PM [Suspect]
     Indication: ANALGESIC THERAPY

REACTIONS (3)
  - DRUG EFFECT PROLONGED [None]
  - DRUG INEFFECTIVE [None]
  - SOMNOLENCE [None]
